FAERS Safety Report 4465752-3 (Version None)
Quarter: 2004Q4

REPORT INFORMATION
  Report Type: 
  Country: None (occurrence: None)
  Receive Date: 20041001
  Receipt Date: 20041001
  Transmission Date: 20050328
  Serious: Yes (Life-Threatening, Hospitalization)
  Sender: FDA-Public Use
  Company Number: None

PATIENT
  Sex: Male
  Weight: 4.96 kg

DRUGS (11)
  1. INTRALIPID 10% [Suspect]
     Indication: GASTROINTESTINAL DISORDER
     Dosage: 24 ML IN TPN DAILY
     Dates: start: 20040825, end: 20040915
  2. INTRALIPID 10% [Suspect]
     Indication: INTESTINAL PERFORATION
     Dosage: 24 ML IN TPN DAILY
     Dates: start: 20040825, end: 20040915
  3. INTRALIPID 10% [Suspect]
  4. INTRALIPID 10% [Suspect]
  5. DEXTROSE [Concomitant]
  6. TROPHAMINE [Concomitant]
  7. CYSTEINE [Concomitant]
  8. M.V.I. [Concomitant]
  9. ZANTAC [Concomitant]
  10. LEVOCARNITINE [Concomitant]
  11. HEPARIN [Concomitant]

REACTIONS (6)
  - ANAEMIA [None]
  - BACTERIAL INFECTION [None]
  - CATHETER SEPSIS [None]
  - CHOLESTASIS [None]
  - FUNGAL INFECTION [None]
  - THROMBOCYTOPENIA [None]
